FAERS Safety Report 7819089-2 (Version None)
Quarter: 2011Q4

REPORT INFORMATION
  Report Type: 
  Country: None (occurrence: None)
  Receive Date: 20111018
  Receipt Date: 20111003
  Transmission Date: 20120403
  Serious: Yes (Other)
  Sender: FDA-Public Use
  Company Number: US-BAYER-2011-025348

PATIENT
  Age: 30 Year
  Sex: Female
  Weight: 52.154 kg

DRUGS (8)
  1. YAZ [Suspect]
     Indication: ENDOMETRIOSIS
  2. YASMIN [Suspect]
     Indication: ENDOMETRIOSIS
  3. CALCIUM CITRATE [Concomitant]
  4. YAZ [Suspect]
     Indication: PREMENSTRUAL SYNDROME
     Dosage: UNK
     Route: 048
     Dates: start: 20061122
  5. YASMIN [Suspect]
     Indication: PREMENSTRUAL SYNDROME
     Dosage: UNK
     Route: 048
     Dates: start: 20040701, end: 20061101
  6. B6-VITAMIIN NS [Concomitant]
  7. MULTI-VITAMIN [Concomitant]
  8. LOVAZA [Concomitant]

REACTIONS (5)
  - INJURY [None]
  - GALLBLADDER NON-FUNCTIONING [None]
  - PAIN [None]
  - BILIARY DYSKINESIA [None]
  - ABDOMINAL PAIN [None]
